FAERS Safety Report 14145675 (Version 1)
Quarter: 2017Q4

REPORT INFORMATION
  Report Type: Spontaneous
  Country: US (occurrence: US)
  Receive Date: 20171031
  Receipt Date: 20171031
  Transmission Date: 20180321
  Serious: No
  Sender: FDA-Public Use
  Company Number: US-PFIZER INC-2017466261

PATIENT
  Age: 75 Year
  Sex: Female
  Weight: 80.73 kg

DRUGS (1)
  1. POTASSIUM ACETATE. [Suspect]
     Active Substance: POTASSIUM ACETATE
     Dosage: UNK

REACTIONS (1)
  - Blood potassium increased [Unknown]
